FAERS Safety Report 5042182-7 (Version None)
Quarter: 2006Q2

REPORT INFORMATION
  Report Type: 
  Country: None (occurrence: None)
  Receive Date: 20060621
  Receipt Date: 20060611
  Transmission Date: 20061013
  Serious: Yes (Hospitalization, Other)
  Sender: FDA-Public Use
  Company Number: 2006BH010992

PATIENT
  Age: 52 Year
  Sex: Male
  Weight: 90.7194 kg

DRUGS (6)
  1. GAMMAGARD S/D [Suspect]
     Indication: IMMUNODEFICIENCY COMMON VARIABLE
     Dosage: IV
     Route: 042
     Dates: start: 20000101, end: 20040409
  2. BP MEDICATION [Concomitant]
  3. ZOCOR [Concomitant]
  4. EFFEXOR [Concomitant]
  5. ZYRTEC [Concomitant]
  6. INSULIN [Concomitant]

REACTIONS (5)
  - CEREBROVASCULAR ACCIDENT [None]
  - DIARRHOEA [None]
  - DRUG INEFFECTIVE [None]
  - PALLOR [None]
  - THROMBOCYTOPENIA [None]
